FAERS Safety Report 9121404 (Version 4)
Quarter: 2013Q3

REPORT INFORMATION
  Report Type: Spontaneous
  Country: US (occurrence: US)
  Receive Date: 20130225
  Receipt Date: 20130704
  Transmission Date: 20140515
  Serious: Yes (Death)
  Sender: FDA-Public Use
  Company Number: US-PFIZER INC-2013065596

PATIENT
  Age: 62 Year
  Sex: Male
  Weight: 69.84 kg

DRUGS (11)
  1. SUTENT [Suspect]
     Indication: RENAL CANCER
     Dosage: 37.5MG ONCE A DAY FOR 28 DAYS FOLLOWED BY 14 DAYS OF WASH OFF
     Route: 048
     Dates: start: 2007
  2. SUTENT [Suspect]
     Indication: RENAL CANCER
     Dosage: 12.5 MG, 3X/DAY
     Dates: start: 20130221
  3. SUTENT [Suspect]
     Indication: MALIGNANT URINARY TRACT NEOPLASM
  4. NORVASC [Concomitant]
     Indication: HYPERTENSION
     Dosage: 10 MG, 1X/DAY
  5. NORVASC [Concomitant]
     Dosage: UNK
  6. PREVACID [Concomitant]
     Dosage: 30 MG, 1X/DAY
  7. VITAMIN B12 [Concomitant]
     Dosage: UNK, DAILY
  8. CALCIUM [Concomitant]
     Dosage: UNK, DAILY
  9. COLACE [Concomitant]
     Dosage: 100 MG, 1X/DAY
  10. IRON [Concomitant]
     Dosage: 325 MG, 1X/DAY
  11. KEFLEX [Concomitant]
     Dosage: 500 MG X 5 DAYS

REACTIONS (11)
  - Second primary malignancy [Fatal]
  - Lymphoma [Fatal]
  - Epistaxis [Unknown]
  - Fatigue [Unknown]
  - Viral infection [Unknown]
  - Spleen disorder [Unknown]
  - Stomatitis [Not Recovered/Not Resolved]
  - Skin disorder [Unknown]
  - Haemoglobin decreased [Unknown]
  - Diplopia [Unknown]
  - Platelet count decreased [Unknown]
